FAERS Safety Report 7622629-X (Version None)
Quarter: 2011Q3

REPORT INFORMATION
  Report Type: 
  Country: None (occurrence: None)
  Receive Date: 20110719
  Receipt Date: 20110719
  Transmission Date: 20111222
  Serious: Yes (Other)
  Sender: FDA-Public Use
  Company Number: None

PATIENT
  Age: 26 Year
  Sex: Female
  Weight: 83.9154 kg

DRUGS (3)
  1. AMOXICILLIN [Suspect]
     Indication: RHINITIS
     Dosage: ONE 500MG TABLET THREE TIMES DAILY PO
     Route: 048
     Dates: start: 20110616, end: 20110626
  2. AMOXICILLIN [Suspect]
     Indication: EAR INFECTION
     Dosage: ONE 500MG TABLET THREE TIMES DAILY PO
     Route: 048
     Dates: start: 20110616, end: 20110626
  3. AMOXICILLIN [Suspect]
     Indication: PHARYNGITIS
     Dosage: ONE 500MG TABLET THREE TIMES DAILY PO
     Route: 048
     Dates: start: 20110616, end: 20110626

REACTIONS (1)
  - DERMATITIS EXFOLIATIVE [None]
